FAERS Safety Report 8090832-3 (Version None)
Quarter: 2012Q1

REPORT INFORMATION
  Report Type: 
  Country: None (occurrence: None)
  Receive Date: 20120131
  Receipt Date: 20120120
  Transmission Date: 20120608
  Serious: Yes (Hospitalization, Other)
  Sender: FDA-Public Use
  Company Number: US-BAYER-201041491NA

PATIENT
  Age: 39 Year
  Sex: Female
  Weight: 77 kg

DRUGS (5)
  1. YAZ [Suspect]
     Indication: ACNE
     Dosage: UNK
     Dates: start: 20050101, end: 20080101
  2. AMOXICILLIN [Concomitant]
     Route: 048
  3. YASMIN [Suspect]
     Indication: ACNE
     Dosage: UNK
     Dates: start: 20050101, end: 20080101
  4. ACETAMINOPHEN [Concomitant]
     Dosage: UNK UNK, PRN
     Route: 048
  5. IBUPROFEN (ADVIL) [Concomitant]
     Route: 048

REACTIONS (20)
  - PRESYNCOPE [None]
  - CEREBRAL VENOUS THROMBOSIS [None]
  - PULMONARY THROMBOSIS [None]
  - CEREBROVASCULAR ACCIDENT [None]
  - INTRACRANIAL PRESSURE INCREASED [None]
  - HYPOTHALAMO-PITUITARY DISORDER [None]
  - SLEEP APNOEA SYNDROME [None]
  - VISUAL ACUITY REDUCED [None]
  - BRAIN INJURY [None]
  - INJURY [None]
  - BRONCHOGENIC CYST [None]
  - NEPHROLITHIASIS [None]
  - CEREBRAL THROMBOSIS [None]
  - HYPERHIDROSIS [None]
  - PULMONARY EMBOLISM [None]
  - ANAEMIA [None]
  - DEAFNESS [None]
  - THYROID NEOPLASM [None]
  - HERPES ZOSTER [None]
  - BENIGN INTRACRANIAL HYPERTENSION [None]
